FAERS Safety Report 11131739 (Version 1)
Quarter: 2015Q2

REPORT INFORMATION
  Report Type: Spontaneous
  Country: US (occurrence: None)
  Receive Date: 20150521
  Receipt Date: 20150521
  Transmission Date: 20150821
  Serious: Yes (Hospitalization)
  Sender: FDA-Public Use
  Company Number: None

PATIENT
  Age: 38 Year
  Sex: Female
  Weight: 99.79 kg

DRUGS (13)
  1. TRAZODONE [Concomitant]
     Active Substance: TRAZODONE HYDROCHLORIDE
  2. SPIRIVA [Concomitant]
     Active Substance: TIOTROPIUM BROMIDE MONOHYDRATE
  3. TRILOGY VENTILATOR [Concomitant]
  4. KLONOPIN [Concomitant]
     Active Substance: CLONAZEPAM
  5. RITALIN [Suspect]
     Active Substance: METHYLPHENIDATE HYDROCHLORIDE
     Indication: MOBILITY DECREASED
     Route: 048
     Dates: start: 20150404, end: 20150519
  6. OXYGEN. [Concomitant]
     Active Substance: OXYGEN
  7. RITALIN [Suspect]
     Active Substance: METHYLPHENIDATE HYDROCHLORIDE
     Indication: DISTURBANCE IN ATTENTION
     Route: 048
     Dates: start: 20150404, end: 20150519
  8. RITALIN [Suspect]
     Active Substance: METHYLPHENIDATE HYDROCHLORIDE
     Indication: ASTHENIA
     Route: 048
     Dates: start: 20150404, end: 20150519
  9. SEROQUEL [Concomitant]
     Active Substance: QUETIAPINE FUMARATE
  10. RITALIN [Suspect]
     Active Substance: METHYLPHENIDATE HYDROCHLORIDE
     Indication: DEPRESSION
     Route: 048
     Dates: start: 20150404, end: 20150519
  11. CELEXA [Concomitant]
     Active Substance: CITALOPRAM HYDROBROMIDE
  12. LYRICA [Concomitant]
     Active Substance: PREGABALIN
  13. ALBUTEROL. [Concomitant]
     Active Substance: ALBUTEROL

REACTIONS (6)
  - Fluid intake reduced [None]
  - Poor venous access [None]
  - Feeding disorder [None]
  - Diarrhoea [None]
  - Dehydration [None]
  - Dry mouth [None]

NARRATIVE: CASE EVENT DATE: 20150516
